FAERS Safety Report 11165619 (Version 1)
Quarter: 2015Q2

REPORT INFORMATION
  Report Type: Spontaneous
  Country: US (occurrence: US)
  Receive Date: 20150604
  Receipt Date: 20150604
  Transmission Date: 20150821
  Serious: No
  Sender: FDA-Public Use
  Company Number: US-BAYER-2015-300865

PATIENT
  Age: 81 Year
  Sex: Female
  Weight: 85.71 kg

DRUGS (1)
  1. MIRALAX [Suspect]
     Active Substance: POLYETHYLENE GLYCOL 3350
     Indication: FAECALOMA
     Dosage: 1 DOSE, QD
     Route: 048

REACTIONS (1)
  - Incorrect drug administration duration [Unknown]
